FAERS Safety Report 8721120 (Version 5)
Quarter: 2014Q3

REPORT INFORMATION
  Report Type: Report from Study
  Country: IN (occurrence: IN)
  Receive Date: 20120813
  Receipt Date: 20140710
  Transmission Date: 20150326
  Serious: Yes (Other)
  Sender: FDA-Public Use
  Company Number: IN-009507513-1208IND003389

PATIENT
  Age: 70 Year
  Sex: Female
  Weight: 50 kg

DRUGS (7)
  1. PANTOP D [Concomitant]
     Dosage: UNK UNK, BID
     Route: 048
     Dates: start: 20120515
  2. EZETIMIBE AND SIMVASTATIN [Suspect]
     Active Substance: EZETIMIBE\SIMVASTATIN
     Indication: ACUTE CORONARY SYNDROME
     Dosage: 10-40 MG, QD
     Route: 048
     Dates: start: 20100317, end: 20120622
  3. MET XL TABLETS [Concomitant]
     Dosage: 50MG DAILY DOSE, QD
     Route: 048
     Dates: start: 20110711
  4. MECOBALAMIN [Concomitant]
     Active Substance: METHYLCOBALAMIN
     Dosage: QD
     Route: 048
     Dates: start: 20120515
  5. NATURES BENEFIT DIABETIC MULTIVITAMIN [Concomitant]
     Dosage: UNK, ONCE
     Route: 048
     Dates: start: 20120515
  6. CLOPIDOGREL [Concomitant]
     Active Substance: CLOPIDOGREL BISULFATE
     Dosage: 75MG DAILY DOSE, QD
     Route: 048
     Dates: start: 20120327
  7. METFORMIN HYDROCHLORIDE EXTENDED RELEASE [Concomitant]
     Active Substance: METFORMIN HYDROCHLORIDE
     Dosage: 500MG DAILY DOSE, BID
     Route: 048
     Dates: start: 20100313

REACTIONS (1)
  - Breast cancer [Not Recovered/Not Resolved]

NARRATIVE: CASE EVENT DATE: 20120623
